FAERS Safety Report 15606692 (Version 1)
Quarter: 2018Q4

REPORT INFORMATION
  Report Type: Spontaneous
  Country: US (occurrence: US)
  Receive Date: 20181106
  Receipt Date: 20181106
  Transmission Date: 20190205
  Serious: No
  Sender: FDA-Public Use
  Company Number: None

PATIENT
  Age: 83 Year
  Sex: Female

DRUGS (1)
  1. ACETYLCYSTEINE (25X4ML) [Suspect]
     Active Substance: ACETYLCYSTEINE
     Indication: PNEUMONIA PSEUDOMONAL
     Route: 055
     Dates: start: 20181021

REACTIONS (3)
  - Diarrhoea [None]
  - Pyrexia [None]
  - Fatigue [None]

NARRATIVE: CASE EVENT DATE: 20181021
